FAERS Safety Report 18403630 (Version 1)
Quarter: 2020Q4

REPORT INFORMATION
  Report Type: Spontaneous
  Country: US (occurrence: US)
  Receive Date: 20201019
  Receipt Date: 20201019
  Transmission Date: 20210114
  Serious: Yes (Other)
  Sender: FDA-Public Use
  Company Number: None

PATIENT
  Age: 26 Year
  Sex: Male
  Weight: 76.5 kg

DRUGS (1)
  1. MENS ROGAINE MINOXIDIL - UNSCENTED FORMULA [Suspect]
     Active Substance: MINOXIDIL
     Indication: ALOPECIA
     Dosage: ?          QUANTITY:2 TABLESPOON(S);?
     Route: 061
     Dates: start: 20190819, end: 20200320

REACTIONS (3)
  - Loss of libido [None]
  - Psychiatric symptom [None]
  - Erectile dysfunction [None]

NARRATIVE: CASE EVENT DATE: 20191019
